FAERS Safety Report 9847276 (Version 1)
Quarter: 2014Q1

REPORT INFORMATION
  Report Type: Spontaneous
  Country: US (occurrence: US)
  Receive Date: 20140127
  Receipt Date: 20140127
  Transmission Date: 20141002
  Serious: Yes (Hospitalization)
  Sender: FDA-Public Use
  Company Number: US-DYAX CORP.-2012DX000276

PATIENT
  Age: 48 Year
  Sex: Female
  Weight: 99.88 kg

DRUGS (9)
  1. KALBITOR [Suspect]
     Indication: HEREDITARY ANGIOEDEMA
     Route: 058
     Dates: start: 20121225, end: 20121225
  2. KALBITOR [Suspect]
     Route: 058
     Dates: start: 20121225, end: 20121225
  3. KALBITOR [Suspect]
     Route: 058
     Dates: start: 20130101, end: 20130101
  4. VISTARIL [Concomitant]
     Indication: ANXIETY
  5. VISTARIL [Concomitant]
     Indication: STRESS
  6. CINRYZE [Concomitant]
     Indication: HEREDITARY ANGIOEDEMA
     Dosage: DRUG ROUTE: INTRAVENOUS
     Route: 042
  7. ATENOLOL [Concomitant]
     Indication: HYPERTENSION
     Route: 048
     Dates: start: 2007
  8. METFORMIN [Concomitant]
     Indication: DIABETES MELLITUS
     Route: 048
     Dates: start: 2007
  9. FIRAZYR [Concomitant]
     Indication: HEREDITARY ANGIOEDEMA
     Route: 058
     Dates: start: 201206

REACTIONS (1)
  - Drug ineffective [Recovered/Resolved]
